FAERS Safety Report 5699210-5 (Version None)
Quarter: 2008Q2

REPORT INFORMATION
  Report Type: 
  Country: None (occurrence: None)
  Receive Date: 20080407
  Receipt Date: 20080407
  Transmission Date: 20081010
  Serious: No
  Sender: FDA-Public Use
  Company Number: None

PATIENT
  Age: 73 Year
  Sex: Male

DRUGS (8)
  1. AMOXICILLIN AND CLAVULANATE POTASSIUM [Suspect]
     Dates: start: 20061221, end: 20061226
  2. PAROXETINE HCL [Concomitant]
  3. GLIPIZIDE [Concomitant]
  4. ACETAMINOPHEN [Concomitant]
  5. IBUPROFEN [Concomitant]
  6. ASPIRIN [Concomitant]
  7. TOPROL-XL [Concomitant]
  8. DILTIAZEM [Concomitant]

REACTIONS (3)
  - ANXIETY [None]
  - HEPATITIS [None]
  - HYPERGLYCAEMIA [None]
